FAERS Safety Report 5528424-X (Version None)
Quarter: 2007Q4

REPORT INFORMATION
  Report Type: 
  Country: None (occurrence: None)
  Receive Date: 20071121
  Receipt Date: 20071107
  Transmission Date: 20080405
  Serious: Yes (Death)
  Sender: FDA-Public Use
  Company Number: 163829ISR

PATIENT
  Age: 25 Year
  Sex: Male

DRUGS (3)
  1. FLUDARABINE PHOSPHATE [Suspect]
     Dosage: (30 MG/M2)
  2. ALEMTUZUMAB [Suspect]
     Dosage: (20 MG)
  3. MELPHALAN [Suspect]
     Dosage: (140 MG/M2)

REACTIONS (16)
  - ALVEOLITIS FIBROSING [None]
  - ANAEMIA [None]
  - ASCITES [None]
  - CRYPTOGENIC ORGANISING PNEUMONIA [None]
  - EROSIVE DUODENITIS [None]
  - FEBRILE NEUTROPENIA [None]
  - GASTROINTESTINAL HAEMORRHAGE [None]
  - GASTROINTESTINAL OEDEMA [None]
  - HAEMODIALYSIS [None]
  - HEPATIC CIRRHOSIS [None]
  - LYMPHOPROLIFERATIVE DISORDER [None]
  - NODULAR REGENERATIVE HYPERPLASIA [None]
  - OBLITERATIVE BRONCHIOLITIS [None]
  - RENAL FAILURE ACUTE [None]
  - VARICES OESOPHAGEAL [None]
  - WEIGHT DECREASED [None]
